FAERS Safety Report 6636328-4 (Version None)
Quarter: 2010Q1

REPORT INFORMATION
  Report Type: 
  Country: None (occurrence: None)
  Receive Date: 20100226
  Receipt Date: 20090127
  Transmission Date: 20100710
  Serious: Yes (Other)
  Sender: FDA-Public Use
  Company Number: WAES 0902USA00525

PATIENT
  Sex: Male

DRUGS (1)
  1. PRINIVIL [Suspect]

REACTIONS (6)
  - BLOOD GLUCOSE ABNORMAL [None]
  - CONFUSIONAL STATE [None]
  - DYSPHAGIA [None]
  - HEADACHE [None]
  - RENAL FAILURE ACUTE [None]
  - SECONDARY HYPERTENSION [None]
